FAERS Safety Report 5856699-6 (Version None)
Quarter: 2008Q3

REPORT INFORMATION
  Report Type: 
  Country: None (occurrence: None)
  Receive Date: 20080821
  Receipt Date: 20080806
  Transmission Date: 20090109
  Serious: Yes (Life-Threatening, Other)
  Sender: FDA-Public Use
  Company Number: 2007AL004525

PATIENT
  Age: 37 Year
  Sex: Female

DRUGS (9)
  1. SERTRALINE HYDROCHLORIDE [Suspect]
     Indication: DEPRESSION
     Dosage: 50 MG;QD;PO
     Route: 048
     Dates: start: 20051010
  2. SERTRALINE HYDROCHLORIDE TABLETS, 100 MG (BASE) (AELLC) (SERTRALINE HY [Concomitant]
     Indication: DEPRESSION
     Dosage: 100 MG; QD; PO
     Route: 048
     Dates: start: 20061106, end: 20061206
  3. KETOLIFE [Concomitant]
  4. SALBUTAMOL [Concomitant]
  5. LACTULOSE [Concomitant]
  6. INFLUENZA VIRUS [Concomitant]
  7. KETOVITE [Concomitant]
  8. CERAZETTE [Concomitant]
  9. BECLOMETHASONE DIPROPIONATE [Concomitant]

REACTIONS (5)
  - ANTIPHOSPHOLIPID SYNDROME [None]
  - DRUG EXPOSURE DURING PREGNANCY [None]
  - RUBELLA [None]
  - VAGINAL HAEMORRHAGE [None]
  - VIRUS SEROLOGY TEST POSITIVE [None]
